FAERS Safety Report 19351447 (Version 1)
Quarter: 2021Q2

REPORT INFORMATION
  Report Type: Spontaneous
  Country: US (occurrence: US)
  Receive Date: 20210531
  Receipt Date: 20210531
  Transmission Date: 20210717
  Serious: No
  Sender: FDA-Public Use
  Company Number: US-SA-2021SA176403

PATIENT
  Age: 54 Year
  Sex: Female

DRUGS (10)
  1. CARISOPRODOL. [Concomitant]
     Active Substance: CARISOPRODOL
  2. PREDNISONE. [Concomitant]
     Active Substance: PREDNISONE
  3. ESTRADIOL. [Concomitant]
     Active Substance: ESTRADIOL
  4. PIMECROLIMUS. [Concomitant]
     Active Substance: PIMECROLIMUS
  5. METHYLPRED [Concomitant]
     Active Substance: METHYLPREDNISOLONE
  6. VALACYCLOVIR [Concomitant]
     Active Substance: VALACYCLOVIR HYDROCHLORIDE
  7. CEPHALEXINE [Concomitant]
     Active Substance: CEPHALEXIN
  8. DUPIXENT [Suspect]
     Active Substance: DUPILUMAB
     Indication: DERMATITIS
     Dosage: 300MG/2ML, QOW
     Route: 058
  9. CLOBETASOL [Concomitant]
     Active Substance: CLOBETASOL
  10. VENLAFAXINE [Concomitant]
     Active Substance: VENLAFAXINE HYDROCHLORIDE

REACTIONS (2)
  - Product use in unapproved indication [Unknown]
  - Oral herpes [Unknown]
